FAERS Safety Report 9054865 (Version 2)
Quarter: 2013Q1

REPORT INFORMATION
  Report Type: Spontaneous
  Country: BE (occurrence: BE)
  Receive Date: 20130208
  Receipt Date: 20130214
  Transmission Date: 20140127
  Serious: Yes (Other)
  Sender: FDA-Public Use
  Company Number: BE-SANOFI-AVENTIS-2013SA009464

PATIENT
  Sex: Female

DRUGS (1)
  1. CLEXANE [Suspect]
     Indication: ATRIAL FIBRILLATION
     Dosage: SINCE 5.6 YEARS
     Route: 065

REACTIONS (2)
  - Osteoporosis [Unknown]
  - Off label use [Unknown]
